FAERS Safety Report 19794613 (Version 1)
Quarter: 2021Q3

REPORT INFORMATION
  Report Type: Report from Study
  Country: US (occurrence: US)
  Receive Date: 20210906
  Receipt Date: 20210906
  Transmission Date: 20211014
  Serious: Yes (Other)
  Sender: FDA-Public Use
  Company Number: US-SA-2021SA290971

PATIENT
  Age: 39 Year
  Sex: Female

DRUGS (1)
  1. TERIFLUNOMIDE. [Suspect]
     Active Substance: TERIFLUNOMIDE
     Indication: MULTIPLE SCLEROSIS
     Dosage: 7 MG, QD
     Route: 048
     Dates: start: 20210824

REACTIONS (5)
  - Urine odour abnormal [Recovering/Resolving]
  - Discomfort [Recovering/Resolving]
  - Diarrhoea [Not Recovered/Not Resolved]
  - Urinary retention [Recovering/Resolving]
  - Fatigue [Not Recovered/Not Resolved]
